FAERS Safety Report 6714973-5 (Version None)
Quarter: 2010Q2

REPORT INFORMATION
  Report Type: 
  Country: None (occurrence: None)
  Receive Date: 20100506
  Receipt Date: 20100506
  Transmission Date: 20101027
  Serious: Yes (Other)
  Sender: FDA-Public Use
  Company Number: None

PATIENT
  Age: 7 Year
  Sex: Female
  Weight: 24.0406 kg

DRUGS (2)
  1. CHILDREN'S TYLENOL 160MG PER 5C MCNEILL [Suspect]
     Indication: MALAISE
     Dosage: 10CC ONE DOSE
     Dates: start: 20100504, end: 20100504
  2. CHILDREN'S TYLENOL 160MG PER 5C MCNEILL [Suspect]
     Indication: PAIN
     Dosage: 10CC ONE DOSE
     Dates: start: 20100504, end: 20100504

REACTIONS (8)
  - BACTERAEMIA [None]
  - BODY TEMPERATURE INCREASED [None]
  - DIZZINESS [None]
  - DYSSTASIA [None]
  - HYPERHIDROSIS [None]
  - NAUSEA [None]
  - PALLOR [None]
  - PULSE ABNORMAL [None]
